FAERS Safety Report 5381686-4 (Version None)
Quarter: 2007Q3

REPORT INFORMATION
  Report Type: 
  Country: None (occurrence: None)
  Receive Date: 20070705
  Receipt Date: 20070705
  Transmission Date: 20080115
  Serious: Yes (Hospitalization, Other)
  Sender: FDA-Public Use
  Company Number: None

PATIENT
  Age: 58 Year
  Sex: Male

DRUGS (10)
  1. REVLIMID [Suspect]
     Indication: MULTIPLE MYELOMA
     Dosage: 15MG DAILY X21D/28D PO
     Route: 048
     Dates: start: 20070312, end: 20070629
  2. REVLIMID [Suspect]
  3. DEXAMETHASONE 0.5MG TAB [Concomitant]
  4. PROCRIT [Concomitant]
  5. AMYTRIPTYLINE [Concomitant]
  6. QVAR 40 [Concomitant]
  7. ALBUTEROL [Concomitant]
  8. DOXYCYCLINE [Concomitant]
  9. CIPROFLOXACIN [Concomitant]
  10. PREDNISONE [Concomitant]

REACTIONS (3)
  - HYPOXIA [None]
  - PNEUMONIA [None]
  - THROMBOCYTOPENIA [None]
